FAERS Safety Report 7564558-6 (Version None)
Quarter: 2011Q2

REPORT INFORMATION
  Report Type: 
  Country: None (occurrence: None)
  Receive Date: 20110622
  Receipt Date: 20100730
  Transmission Date: 20111010
  Serious: Yes (Other)
  Sender: FDA-Public Use
  Company Number: US-MYLANLABS-2010S1009622

PATIENT
  Age: 59 Year
  Sex: Female

DRUGS (7)
  1. CLOZAPINE [Suspect]
     Indication: SCHIZOPHRENIA
     Route: 048
  2. COUMADIN [Concomitant]
  3. DIVALPROEX SODIUM [Concomitant]
  4. ISOSORBIDE [Concomitant]
  5. COREG [Concomitant]
  6. ZOCOR [Concomitant]
  7. CLOZAPINE [Suspect]
     Route: 048

REACTIONS (2)
  - LEUKOPENIA [None]
  - GRANULOCYTOPENIA [None]
